FAERS Safety Report 5003742-2 (Version None)
Quarter: 2006Q2

REPORT INFORMATION
  Report Type: 
  Country: None (occurrence: None)
  Receive Date: 20060516
  Receipt Date: 20060220
  Transmission Date: 20061013
  Serious: Yes (Hospitalization, Other)
  Sender: FDA-Public Use
  Company Number: US-MERCK-0602USA05126

PATIENT
  Age: 45 Year
  Sex: Male
  Weight: 130 kg

DRUGS (7)
  1. VIOXX [Suspect]
     Indication: PAIN IN EXTREMITY
     Route: 048
     Dates: start: 20020901, end: 20041001
  2. VIOXX [Suspect]
     Route: 048
     Dates: start: 20020901, end: 20041001
  3. PRILOSEC [Concomitant]
     Route: 065
  4. METOCLOPRAMIDE [Concomitant]
     Route: 065
  5. NORVASC [Concomitant]
     Route: 065
  6. COMBIVENT [Concomitant]
     Route: 065
  7. AZMACORT [Concomitant]
     Route: 065

REACTIONS (7)
  - CHEST PAIN [None]
  - CORONARY ARTERY DISEASE [None]
  - DIASTOLIC DYSFUNCTION [None]
  - DILATATION ATRIAL [None]
  - GALLBLADDER DISORDER [None]
  - HYPERTENSIVE HEART DISEASE [None]
  - MYOCARDIAL INFARCTION [None]
